FAERS Safety Report 4584817-9 (Version None)
Quarter: 2005Q1

REPORT INFORMATION
  Report Type: 
  Country: None (occurrence: None)
  Receive Date: 20050214
  Receipt Date: 20050131
  Transmission Date: 20050727
  Serious: No
  Sender: FDA-Public Use
  Company Number: 2005UW01731

PATIENT
  Age: 47 Year
  Sex: Male

DRUGS (4)
  1. SEROQUEL [Suspect]
     Indication: DISSOCIATIVE DISORDER
     Dates: end: 20040601
  2. SEROQUEL [Suspect]
     Indication: MANIA
     Dates: end: 20040601
  3. DEPAKOTE [Concomitant]
  4. SLEEP MEDICATIONS [Concomitant]

REACTIONS (5)
  - ABNORMAL BEHAVIOUR [None]
  - CONDITION AGGRAVATED [None]
  - IMPRISONMENT [None]
  - MANIA [None]
  - SUICIDE ATTEMPT [None]
